FAERS Safety Report 7090225-1 (Version None)
Quarter: 2010Q4

REPORT INFORMATION
  Report Type: 
  Country: None (occurrence: None)
  Receive Date: 20101109
  Receipt Date: 20101101
  Transmission Date: 20110411
  Serious: Yes (Death, Hospitalization)
  Sender: FDA-Public Use
  Company Number: US-CELGENEUS-163-21880-10110163

PATIENT
  Sex: Male

DRUGS (6)
  1. REVLIMID [Suspect]
     Indication: MULTIPLE MYELOMA
     Route: 048
     Dates: start: 20070201, end: 20090801
  2. DEXAMETHASONE [Concomitant]
     Route: 065
  3. GABAPENTIN [Concomitant]
     Route: 065
  4. ACYCLOVIR SODIUM [Concomitant]
     Route: 065
  5. METOPROLOL [Concomitant]
     Route: 065
  6. WARFARIN [Concomitant]
     Route: 065

REACTIONS (5)
  - DEATH [None]
  - INTERNATIONAL NORMALISED RATIO INCREASED [None]
  - PANCREATIC CARCINOMA [None]
  - SMALL INTESTINE CARCINOMA [None]
  - SYNCOPE [None]
